FAERS Safety Report 13559305 (Version 1)
Quarter: 2017Q2

REPORT INFORMATION
  Report Type: Spontaneous
  Country: DE (occurrence: DE)
  Receive Date: 20170518
  Receipt Date: 20170518
  Transmission Date: 20170830
  Serious: Yes (Hospitalization, Other)
  Sender: FDA-Public Use
  Company Number: DE-JNJFOC-20170507897

PATIENT
  Age: 84 Year
  Sex: Male

DRUGS (11)
  1. PIPAMPERONE [Interacting]
     Active Substance: PIPAMPERONE
     Indication: RESTLESSNESS
     Route: 048
     Dates: start: 20170215, end: 20170216
  2. PIPAMPERONE [Interacting]
     Active Substance: PIPAMPERONE
     Indication: RESTLESSNESS
     Route: 048
     Dates: start: 20170220
  3. EXELON [Concomitant]
     Active Substance: RIVASTIGMINE TARTRATE
     Dosage: SINCE WEEKS
     Route: 048
     Dates: end: 20170206
  4. PIPAMPERONE [Interacting]
     Active Substance: PIPAMPERONE
     Indication: RESTLESSNESS
     Route: 048
     Dates: start: 20170213, end: 20170214
  5. RISPERIDONE. [Suspect]
     Active Substance: RISPERIDONE
     Indication: PRODUCT USED FOR UNKNOWN INDICATION
     Route: 048
     Dates: end: 2017
  6. PIPAMPERONE [Interacting]
     Active Substance: PIPAMPERONE
     Indication: RESTLESSNESS
     Route: 048
     Dates: start: 20170218, end: 20170219
  7. EXELON [Concomitant]
     Active Substance: RIVASTIGMINE TARTRATE
     Route: 048
     Dates: start: 20170207
  8. RISPERIDONE. [Suspect]
     Active Substance: RISPERIDONE
     Indication: PRODUCT USED FOR UNKNOWN INDICATION
     Dosage: DOSE REDUCED
     Route: 048
     Dates: start: 2017
  9. PIPAMPERONE [Interacting]
     Active Substance: PIPAMPERONE
     Indication: RESTLESSNESS
     Route: 048
     Dates: start: 20170217, end: 201702
  10. PIPAMPERONE [Interacting]
     Active Substance: PIPAMPERONE
     Indication: RESTLESSNESS
     Route: 048
     Dates: start: 20170208, end: 20170212
  11. PANTOPRAZOLE [Concomitant]
     Active Substance: PANTOPRAZOLE
     Dosage: SINCE WEEKS
     Route: 048

REACTIONS (3)
  - Hospitalisation [Unknown]
  - Oedema peripheral [Recovering/Resolving]
  - Drug interaction [Recovering/Resolving]

NARRATIVE: CASE EVENT DATE: 20170203
